FAERS Safety Report 8841873 (Version 2)
Quarter: 2012Q4

REPORT INFORMATION
  Report Type: 
  Country: US (occurrence: US)
  Receive Date: 20121016
  Receipt Date: 20121114
  Transmission Date: 20130627
  Serious: Yes (Hospitalization)
  Sender: FDA-Public Use
  Company Number: US-PURDUE-USA-2012-0094367

PATIENT
  Sex: Female
  Weight: 140 kg

DRUGS (1)
  1. OXYCONTIN (NDA 22-272) [Suspect]
     Indication: PAIN
     Dosage: 30 mg, q12h
     Route: 048

REACTIONS (2)
  - Heart injury [Unknown]
  - Chest pain [Unknown]
